FAERS Safety Report 6253361-5 (Version None)
Quarter: 2009Q3

REPORT INFORMATION
  Report Type: 
  Country: None (occurrence: None)
  Receive Date: 20090701
  Receipt Date: 20090619
  Transmission Date: 20100115
  Serious: Yes (Other)
  Sender: FDA-Public Use
  Company Number: PHHY2009BR24917

PATIENT
  Sex: Female

DRUGS (1)
  1. DIOVAN [Suspect]
     Indication: BLOOD PRESSURE
     Dosage: 1 TABLET A DAY/ IN THE MORNING
     Route: 048

REACTIONS (5)
  - CAROTID ARTERY OCCLUSION [None]
  - CATARACT [None]
  - CATARACT OPERATION [None]
  - CATHETERISATION CARDIAC [None]
  - HYPOAESTHESIA [None]
